FAERS Safety Report 7647085-7 (Version None)
Quarter: 2011Q3

REPORT INFORMATION
  Report Type: 
  Country: None (occurrence: None)
  Receive Date: 20110801
  Receipt Date: 20110728
  Transmission Date: 20111222
  Serious: Yes (Death, Other)
  Sender: FDA-Public Use
  Company Number: AT-JNJFOC-20090606883

PATIENT
  Age: 23 Year
  Sex: Female

DRUGS (2)
  1. DIPIDOLOR [Suspect]
     Indication: PAIN
     Route: 050
  2. TRAMADOL HYDROCHLORIDE [Suspect]
     Indication: PAIN
     Route: 065

REACTIONS (3)
  - CARDIAC ARREST [None]
  - RESPIRATORY DEPRESSION [None]
  - OVERDOSE [None]
